FAERS Safety Report 5171225-5 (Version None)
Quarter: 2006Q4

REPORT INFORMATION
  Report Type: 
  Country: None (occurrence: None)
  Receive Date: 20061207
  Receipt Date: 20061207
  Transmission Date: 20070319
  Serious: Yes (Other)
  Sender: FDA-Public Use
  Company Number: None

PATIENT
  Sex: Female

DRUGS (1)
  1. OMNIPAQUE 140 [Suspect]
     Indication: ABDOMINAL PAIN
     Dosage: IV 60 CC@1310
     Route: 042
     Dates: start: 20061129

REACTIONS (2)
  - DYSPHAGIA [None]
  - URTICARIA [None]
